FAERS Safety Report 25979462 (Version 1)
Quarter: 2025Q4

REPORT INFORMATION
  Report Type: Spontaneous
  Country: US (occurrence: US)
  Receive Date: 20251030
  Receipt Date: 20251030
  Transmission Date: 20260117
  Serious: Yes (Death, Other)
  Sender: MDD OPERATIONS
  Company Number: US-MDD US Operations-MDD202504-001377

PATIENT
  Age: 80 Year
  Sex: Male

DRUGS (3)
  1. APOKYN [Suspect]
     Active Substance: APOMORPHINE HYDROCHLORIDE
     Indication: Parkinson^s disease
  2. APOKYN [Suspect]
     Active Substance: APOMORPHINE HYDROCHLORIDE
     Dates: start: 2025
  3. APOKYN [Suspect]
     Active Substance: APOMORPHINE HYDROCHLORIDE
     Dosage: 0.12ML AS ORDERED
     Route: 058
     Dates: start: 20241212

REACTIONS (10)
  - Death [Fatal]
  - Hallucination [Unknown]
  - Chest pain [Unknown]
  - Dyspnoea [Unknown]
  - Restlessness [Unknown]
  - Dysstasia [Recovered/Resolved]
  - Middle insomnia [Unknown]
  - Aggression [Unknown]
  - Dizziness [Recovered/Resolved]
  - Somnolence [Recovered/Resolved]

NARRATIVE: CASE EVENT DATE: 20250101
